FAERS Safety Report 5826285-2 (Version None)
Quarter: 2008Q3

REPORT INFORMATION
  Report Type: 
  Country: None (occurrence: None)
  Receive Date: 20080729
  Receipt Date: 20080717
  Transmission Date: 20090109
  Serious: Yes (Death, Hospitalization)
  Sender: FDA-Public Use
  Company Number: JP-PFIZER INC-2008053945

PATIENT
  Sex: Female
  Weight: 41.6 kg

DRUGS (7)
  1. SULPERAZON [Suspect]
     Indication: PNEUMONIA ASPIRATION
     Route: 042
     Dates: start: 20080528, end: 20080529
  2. FAMOTIDINE [Concomitant]
     Route: 042
     Dates: start: 20080513, end: 20080617
  3. CEFTRIAXONE SODIUM [Concomitant]
     Route: 042
     Dates: start: 20080514, end: 20080527
  4. ATARAX [Concomitant]
     Route: 030
     Dates: start: 20080518, end: 20080518
  5. ADONAMIN-C [Concomitant]
     Route: 042
     Dates: start: 20080522, end: 20080528
  6. LASIX [Concomitant]
     Route: 042
     Dates: start: 20080526, end: 20080531
  7. DOPAMINE HYDROCHLORIDE [Concomitant]
     Route: 042
     Dates: start: 20080528, end: 20080617

REACTIONS (1)
  - RENAL FAILURE ACUTE [None]
